FAERS Safety Report 4977068-7 (Version None)
Quarter: 2006Q1

REPORT INFORMATION
  Report Type: 
  Country: None (occurrence: None)
  Receive Date: 20060223
  Receipt Date: 20050128
  Transmission Date: 20060701
  Serious: Yes (Other)
  Sender: FDA-Public Use
  Company Number: HQWYE396228SEP04

PATIENT
  Age: 35 Year
  Sex: Male
  Weight: 79.45 kg

DRUGS (1)
  1. EFFEXOR [Suspect]
     Indication: OBSESSIVE-COMPULSIVE DISORDER
     Dosage: ORAL
     Route: 048

REACTIONS (1)
  - DRUG SCREEN POSITIVE [None]
